FAERS Safety Report 5705345-0 (Version None)
Quarter: 2008Q2

REPORT INFORMATION
  Report Type: 
  Country: None (occurrence: None)
  Receive Date: 20080410
  Receipt Date: 20080325
  Transmission Date: 20081010
  Serious: Yes (Hospitalization)
  Sender: FDA-Public Use
  Company Number: 2007JP003070

PATIENT
  Age: 75 Year
  Sex: Female
  Weight: 45.7 kg

DRUGS (22)
  1. TACROLIMUS [Suspect]
     Indication: RHEUMATOID ARTHRITIS
     Dosage: 0.5 MG, /D, ORAL; 1MG,/D, ORAL
     Route: 048
     Dates: start: 20061225, end: 20070207
  2. TACROLIMUS [Suspect]
     Indication: RHEUMATOID ARTHRITIS
     Dosage: 0.5 MG, /D, ORAL; 1MG,/D, ORAL
     Route: 048
     Dates: start: 20070208, end: 20070508
  3. PREDNISOLONE [Suspect]
     Indication: RHEUMATOID ARTHRITIS
     Dosage: 5 MG, BID, ORAL
     Route: 048
     Dates: start: 20050526
  4. BUCILLAMINE (BUCILLAMINE) TABLET [Concomitant]
  5. RISEDRONATE SODIUM [Concomitant]
  6. MINOCYCLINE HYDROCHLORIDE [Concomitant]
  7. ISALON (ALDIOXA) TABLET, 100 MG [Concomitant]
  8. MUCOSTA (REBAMIPIDE) TABLET, 100 MG [Concomitant]
  9. CEROCRAL (IFENPRODIL TARTRATE) VAGINAL TABLET, 20 MG [Concomitant]
  10. MARZULENE S (LEVOGLUTAMIDE, SODIUM GUALENATE) GRANULE, 0.67 G [Concomitant]
  11. TAKEPRON (LANSOPRAZOLE) CAPSULE, 15 MG [Concomitant]
  12. AMLODIN (AMLODIPINE BESILATE) ORODISPERSIBLE CR TABLET, 5 MG [Concomitant]
  13. NORVASC [Concomitant]
  14. LIPOVAS (SIMVASTATIN) TABLET [Concomitant]
  15. PRAVASTAN (PRAVASTATIN SODIUM) TABLET, 10 MG [Concomitant]
  16. METHYCOBAL (MECOBALAMIN) TABLET [Concomitant]
  17. PRORANON (PRANOPROFEN) EYE DROP [Concomitant]
  18. TIMOPTOL (TIMOLOL MALEATE) EAR DROP, 0.5 % [Concomitant]
  19. FLUMETHOLON (FLUOROMETHOLONE) EYE DROP [Concomitant]
  20. ACTONEL [Concomitant]
  21. ULGUT (BENEXATE HYDROCHLORIDE) CAPSULE, 200 MG [Concomitant]
  22. TAKEPRON (LANSOPRAZOLE) ORODISPERSIBLE CR TABLET, 15 MG [Concomitant]

REACTIONS (5)
  - CONDITION AGGRAVATED [None]
  - CONSTIPATION [None]
  - GLYCOSYLATED HAEMOGLOBIN INCREASED [None]
  - RHEUMATOID ARTHRITIS [None]
  - WHITE BLOOD CELL COUNT INCREASED [None]
